FAERS Safety Report 6646651-5 (Version None)
Quarter: 2010Q1

REPORT INFORMATION
  Report Type: 
  Country: None (occurrence: None)
  Receive Date: 20100323
  Receipt Date: 20100310
  Transmission Date: 20100710
  Serious: Yes (Hospitalization, Other)
  Sender: FDA-Public Use
  Company Number: ES-CELGENEUS-144-50794-10030968

PATIENT
  Sex: Female

DRUGS (7)
  1. VIDAZA [Suspect]
     Route: 058
     Dates: start: 20080630, end: 20090301
  2. VIDAZA [Suspect]
     Route: 058
     Dates: start: 20090610, end: 20091001
  3. VIDAZA [Suspect]
     Route: 058
     Dates: start: 20100101, end: 20100201
  4. ONDANSETRON [Concomitant]
     Indication: ADJUVANT THERAPY
     Route: 065
  5. DARBEPOETIN [Concomitant]
     Indication: ADJUVANT THERAPY
     Route: 065
  6. NEUPOGEN [Concomitant]
     Indication: ADJUVANT THERAPY
     Route: 065
  7. IRON-CHELATING AGENT [Concomitant]
     Indication: ADJUVANT THERAPY
     Route: 065

REACTIONS (13)
  - ASTHENIA [None]
  - BACK PAIN [None]
  - CONSTIPATION [None]
  - DECREASED APPETITE [None]
  - DIZZINESS [None]
  - FATIGUE [None]
  - FULL BLOOD COUNT DECREASED [None]
  - HAEMOGLOBIN DECREASED [None]
  - INFLUENZA LIKE ILLNESS [None]
  - NEUTROPENIA [None]
  - PANCREATITIS [None]
  - THROMBOCYTOPENIA [None]
  - WEIGHT DECREASED [None]
